FAERS Safety Report 4554628-9 (Version None)
Quarter: 2005Q1

REPORT INFORMATION
  Report Type: 
  Country: None (occurrence: None)
  Receive Date: 20050110
  Receipt Date: 20041221
  Transmission Date: 20050727
  Serious: Yes (Other)
  Sender: FDA-Public Use
  Company Number: 601709

PATIENT

DRUGS (1)
  1. FEIBA VH IMMUNO [Suspect]
     Indication: HAEMOPHILIA A WITH ANTI FACTOR VIII
     Dosage: PRN

REACTIONS (2)
  - HAEMORRHAGE [None]
  - THERAPY NON-RESPONDER [None]
